FAERS Safety Report 8748676 (Version 2)
Quarter: 2012Q4

REPORT INFORMATION
  Report Type: 
  Country: US (occurrence: US)
  Receive Date: 20120827
  Receipt Date: 20120927
  Transmission Date: 20130627
  Serious: No
  Sender: FDA-Public Use
  Company Number: US-B.I. PHARMACEUTICALS,INC./RIDGEFIELD-2012-BP-20391BP

PATIENT
  Sex: Male

DRUGS (1)
  1. PRADAXA [Suspect]
     Indication: FACTOR V LEIDEN MUTATION
     Dosage: 300 mg
     Route: 048
     Dates: start: 201207, end: 201209

REACTIONS (2)
  - Palpitations [Recovered/Resolved]
  - Alopecia [Recovered/Resolved]
